FAERS Safety Report 6173680-0 (Version None)
Quarter: 2009Q2

REPORT INFORMATION
  Report Type: 
  Country: None (occurrence: None)
  Receive Date: 20090429
  Receipt Date: 20090429
  Transmission Date: 20091009
  Serious: No
  Sender: FDA-Public Use
  Company Number: None

PATIENT
  Sex: Female
  Weight: 79.3795 kg

DRUGS (9)
  1. VIVAGLOBIN [Suspect]
     Indication: HYPOGAMMAGLOBULINAEMIA
     Dosage: 9.6 GRAMS QWEEK SQ
     Route: 058
     Dates: start: 20090320, end: 20090417
  2. VIVAGLOBIN [Suspect]
     Indication: HYPOGAMMAGLOBULINAEMIA
     Dosage: 9.6 GRAMS QWEEK SQ
     Route: 058
     Dates: start: 20090416
  3. DIPHENHYDRAMINE HCL [Concomitant]
  4. ACETAMINOPHEN [Concomitant]
  5. TRIAMTERENE AND HYDROCHLOROTHIAZIDE [Concomitant]
  6. VALSARTAN [Concomitant]
  7. ESOMEPRAZOLE MAGNESIUM [Concomitant]
  8. ALBUTEROL [Concomitant]
  9. ROSUVASTATIN CALCIUM [Concomitant]

REACTIONS (5)
  - BACK PAIN [None]
  - CHILLS [None]
  - HEADACHE [None]
  - NAUSEA [None]
  - NECK PAIN [None]
